FAERS Safety Report 8555970 (Version 2)
Quarter: 2012Q4

REPORT INFORMATION
  Report Type: 
  Country: US (occurrence: US)
  Receive Date: 20120510
  Receipt Date: 20120907
  Transmission Date: 20130627
  Serious: Yes (Hospitalization)
  Sender: FDA-Public Use
  Company Number: US-BAYER-2012-045451

PATIENT
  Age: 28 Year
  Sex: Female
  Weight: 111.11 kg

DRUGS (4)
  1. YASMIN [Suspect]
     Dosage: UNK
     Dates: start: 200307, end: 200908
  2. ADVAIR [Concomitant]
  3. MOTRIN [Concomitant]
  4. ADVIL [Concomitant]

REACTIONS (7)
  - Gallbladder injury [None]
  - Pain [None]
  - Fear of disease [None]
  - Injury [None]
  - Abdominal pain upper [None]
  - Abdominal pain [None]
  - Pain [None]
